FAERS Safety Report 9686229 (Version 1)
Quarter: 2013Q4

REPORT INFORMATION
  Report Type: Spontaneous
  Country: US (occurrence: US)
  Receive Date: 20131113
  Receipt Date: 20131113
  Transmission Date: 20140711
  Serious: Yes (Other)
  Sender: FDA-Public Use
  Company Number: PHHY2013US127124

PATIENT
  Age: 58 Year
  Sex: Male

DRUGS (3)
  1. 5-FLUOROURACIL [Suspect]
     Indication: SQUAMOUS CELL CARCINOMA OF THE TONGUE
  2. CISPLATIN [Concomitant]
     Indication: SQUAMOUS CELL CARCINOMA OF THE TONGUE
  3. DOCETAXEL [Concomitant]
     Indication: SQUAMOUS CELL CARCINOMA OF THE TONGUE

REACTIONS (12)
  - Arteriospasm coronary [Recovered/Resolved]
  - Left ventricular hypertrophy [Recovered/Resolved]
  - Unresponsive to stimuli [Recovered/Resolved]
  - Ventricular fibrillation [Recovered/Resolved]
  - Atrial fibrillation [Recovered/Resolved]
  - Ventricular tachycardia [Recovered/Resolved]
  - Sinus bradycardia [Recovered/Resolved]
  - Cardiac arrest [Recovered/Resolved]
  - Chest discomfort [Recovered/Resolved]
  - Myocarditis [Recovered/Resolved]
  - Chest pain [Recovered/Resolved]
  - Angina pectoris [Recovered/Resolved]
